FAERS Safety Report 24024154 (Version 2)
Quarter: 2024Q3

REPORT INFORMATION
  Report Type: Spontaneous
  Country: US (occurrence: US)
  Receive Date: 20240627
  Receipt Date: 20240703
  Transmission Date: 20241016
  Serious: Yes (Other)
  Sender: BRISTOL MYERS SQUIBB
  Company Number: US-BRISTOL-MYERS SQUIBB COMPANY-2024-102569

PATIENT
  Age: 56 Year
  Sex: Female

DRUGS (1)
  1. LENALIDOMIDE [Suspect]
     Active Substance: LENALIDOMIDE
     Indication: Plasma cell myeloma
     Dosage: FREQUENCY: TAKE 1 CAPSULE BY MOUTH DAILY FOR 2 WEEKS ON, THEN 1 WEEK OFF (TAKE AFTER DIALYSIS WHEN D
     Route: 048

REACTIONS (5)
  - Diarrhoea [Recovered/Resolved]
  - Renal disorder [Unknown]
  - Off label use [Unknown]
  - Oral pain [Recovering/Resolving]
  - Pulmonary embolism [Unknown]
